FAERS Safety Report 7761991-4 (Version None)
Quarter: 2011Q3

REPORT INFORMATION
  Report Type: 
  Country: None (occurrence: None)
  Receive Date: 20110920
  Receipt Date: 20110915
  Transmission Date: 20111222
  Serious: Yes (Other)
  Sender: FDA-Public Use
  Company Number: US-VERTEX PHARMACEUTICALS INC.-AE-2011-001280

PATIENT
  Sex: Male

DRUGS (5)
  1. NADOLOL [Concomitant]
  2. INCIVEK [Suspect]
     Indication: HEPATITIS C
     Dates: start: 20110719, end: 20110901
  3. PEGINTERFERON [Concomitant]
     Indication: HEPATITIS C
     Dates: start: 20110719, end: 20110901
  4. KLONOPIN [Concomitant]
  5. RIBAVIRIN [Concomitant]
     Indication: HEPATITIS C
     Dates: start: 20110719, end: 20110901

REACTIONS (4)
  - ANAEMIA [None]
  - ACUTE GENERALISED EXANTHEMATOUS PUSTULOSIS [None]
  - BLOOD CREATININE INCREASED [None]
  - THROMBOCYTOPENIA [None]
